FAERS Safety Report 6678225-4 (Version None)
Quarter: 2010Q2

REPORT INFORMATION
  Report Type: 
  Country: None (occurrence: None)
  Receive Date: 20100408
  Receipt Date: 20100408
  Transmission Date: 20101027
  Serious: No
  Sender: FDA-Public Use
  Company Number: None

PATIENT
  Age: 69 Year
  Sex: Male
  Weight: 79.3795 kg

DRUGS (1)
  1. AVELOX [Suspect]
     Indication: BRONCHITIS CHRONIC
     Dosage: ONCE A DAY 7 DAYS PO
     Route: 048
     Dates: start: 20091215, end: 20091221

REACTIONS (1)
  - TENDON DISORDER [None]
